FAERS Safety Report 6165711-9 (Version None)
Quarter: 2009Q2

REPORT INFORMATION
  Report Type: 
  Country: None (occurrence: None)
  Receive Date: 20090422
  Receipt Date: 20090413
  Transmission Date: 20091009
  Serious: No
  Sender: FDA-Public Use
  Company Number: 240729

PATIENT
  Age: 64 Year
  Sex: Female
  Weight: 91.7 kg

DRUGS (1)
  1. CARBOPLATIN [Suspect]
     Indication: FALLOPIAN TUBE NEOPLASM
     Dosage: 600 MG, CONTINUOUS, INTRAVENOUS
     Route: 042
     Dates: start: 20090402, end: 20090402

REACTIONS (5)
  - DIARRHOEA [None]
  - ERYTHEMA [None]
  - HYPERSENSITIVITY [None]
  - NAUSEA [None]
  - OXYGEN SATURATION DECREASED [None]
